FAERS Safety Report 16102581 (Version 1)
Quarter: 2019Q1

REPORT INFORMATION
  Report Type: Spontaneous
  Country: US (occurrence: US)
  Receive Date: 20190321
  Receipt Date: 20190321
  Transmission Date: 20190418
  Serious: Yes (Life-Threatening, Hospitalization)
  Sender: FDA-Public Use
  Company Number: US-TEVA-2019-US-1027083

PATIENT
  Age: 36 Year
  Sex: Female

DRUGS (1)
  1. LOPERAMIDE [Suspect]
     Active Substance: LOPERAMIDE
     Indication: INFLAMMATORY BOWEL DISEASE
     Dosage: DOSE: 400-600MG DAILY FOR 2-3 WEEKS PRIOR TO HOSPITALISATION
     Route: 048

REACTIONS (9)
  - Cardiac arrest [Recovered/Resolved]
  - Haemodynamic instability [Recovered/Resolved]
  - Arrhythmia [Recovered/Resolved]
  - Somnolence [Recovered/Resolved]
  - Toxicity to various agents [Recovered/Resolved]
  - Acute kidney injury [Recovered/Resolved]
  - Intentional overdose [Recovered/Resolved]
  - Hepatic failure [Recovered/Resolved]
  - Intentional product misuse [Recovered/Resolved]
